FAERS Safety Report 9236492 (Version 1)
Quarter: 2013Q2

REPORT INFORMATION
  Report Type: Spontaneous
  Country: FR (occurrence: FR)
  Receive Date: 20130417
  Receipt Date: 20130417
  Transmission Date: 20140414
  Serious: Yes (Death)
  Sender: FDA-Public Use
  Company Number: FR-ELI_LILLY_AND_COMPANY-FR201304001683

PATIENT
  Age: 36 Year
  Sex: Male

DRUGS (10)
  1. ZYPREXA [Suspect]
     Indication: MENTAL DISORDER
     Dosage: UNK
     Route: 048
  2. LEPTICUR [Concomitant]
     Dosage: UNK
     Route: 048
  3. BUPRENORPHINE [Concomitant]
     Dosage: UNK
     Route: 048
  4. ALIMEMAZINE [Concomitant]
     Dosage: UNK
     Route: 048
  5. LEVOMEPROMAZINE [Concomitant]
     Dosage: UNK
     Route: 048
  6. HALOPERIDOL [Concomitant]
     Dosage: UNK
     Route: 048
  7. LOXAPINE [Concomitant]
     Dosage: UNK
     Route: 048
  8. DIAZEPAM [Concomitant]
     Dosage: UNK
     Route: 048
  9. TEMAZEPAM [Concomitant]
     Dosage: UNK
     Route: 048
  10. OXAZEPAM [Concomitant]
     Dosage: UNK
     Route: 048

REACTIONS (3)
  - Intestinal obstruction [Fatal]
  - Bacteraemia [Fatal]
  - Constipation [Not Recovered/Not Resolved]
